FAERS Safety Report 13527565 (Version 1)
Quarter: 2017Q2

REPORT INFORMATION
  Report Type: Spontaneous
  Country: CH (occurrence: CH)
  Receive Date: 20170509
  Receipt Date: 20170509
  Transmission Date: 20170830
  Serious: Yes (Other)
  Sender: FDA-Public Use
  Company Number: CH-GLAXOSMITHKLINE-CH2017GSK062767

PATIENT
  Age: 62 Year
  Sex: Male

DRUGS (4)
  1. CITALOPRAM [Interacting]
     Active Substance: CITALOPRAM HYDROBROMIDE
     Indication: DEPRESSION
     Dosage: 40 MG, QD
  2. PARACETAMOL [Interacting]
     Active Substance: ACETAMINOPHEN
     Indication: BACK PAIN
  3. TRAMADOL. [Interacting]
     Active Substance: TRAMADOL
     Indication: BACK PAIN
     Dosage: 50 MG, QD
  4. BUPROPION. [Suspect]
     Active Substance: BUPROPION
     Indication: DEPRESSION
     Dosage: 300 MG, QD

REACTIONS (10)
  - Anxiety [Unknown]
  - Drug ineffective [Unknown]
  - Cognitive disorder [Unknown]
  - Serotonin syndrome [Unknown]
  - Extrapyramidal disorder [Unknown]
  - Hyperreflexia [Unknown]
  - Hyperhidrosis [Unknown]
  - Autonomic nervous system imbalance [Unknown]
  - Confusional state [Unknown]
  - Clonus [Unknown]
